FAERS Safety Report 8174727-2 (Version None)
Quarter: 2012Q1

REPORT INFORMATION
  Report Type: 
  Country: None (occurrence: None)
  Receive Date: 20120229
  Receipt Date: 20120208
  Transmission Date: 20120608
  Serious: Yes (Other)
  Sender: FDA-Public Use
  Company Number: JP-GLAXOSMITHKLINE-B0780752A

PATIENT
  Sex: Male

DRUGS (4)
  1. FLUNITRAZEPAM [Concomitant]
     Indication: INSOMNIA
     Dosage: 2MG PER DAY
     Route: 048
     Dates: start: 20111017
  2. LITHIUM CARBONATE [Concomitant]
     Indication: MANIA
     Dosage: 400MG PER DAY
     Route: 048
     Dates: start: 20111110
  3. LAMICTAL [Suspect]
     Indication: DEPRESSION
     Dosage: 25MG PER DAY
     Route: 048
     Dates: start: 20120118, end: 20120125
  4. PROMAZINE HYDROCHLORIDE [Concomitant]
     Indication: INSOMNIA
     Dosage: 50MG PER DAY
     Route: 048
     Dates: start: 20111024

REACTIONS (1)
  - MANIA [None]
